FAERS Safety Report 6265970-8 (Version None)
Quarter: 2009Q3

REPORT INFORMATION
  Report Type: 
  Country: None (occurrence: None)
  Receive Date: 20090709
  Receipt Date: 20090630
  Transmission Date: 20100115
  Serious: Yes (Disabling)
  Sender: FDA-Public Use
  Company Number: GXKR2007GB03730

PATIENT
  Age: 77 Year
  Sex: Male
  Weight: 90 kg

DRUGS (4)
  1. TRAMADOL HCL [Suspect]
     Indication: ARTHRALGIA
     Dosage: 300 MG, ORAL
     Route: 048
     Dates: start: 20070305, end: 20070311
  2. DICLOFENAC (DICLOFENAC) [Concomitant]
  3. OMEPRAZOLE [Concomitant]
  4. PREDNISOLONE [Concomitant]

REACTIONS (1)
  - MUSCULAR WEAKNESS [None]
